FAERS Safety Report 8465566-3 (Version None)
Quarter: 2012Q2

REPORT INFORMATION
  Report Type: 
  Country: None (occurrence: None)
  Receive Date: 20120626
  Receipt Date: 20120612
  Transmission Date: 20120825
  Serious: Yes (Hospitalization)
  Sender: FDA-Public Use
  Company Number: GB-MYLANLABS-2012S1010034

PATIENT
  Age: 36 Year
  Sex: Female

DRUGS (7)
  1. CITALOPRAM HYDROBROMIDE [Suspect]
     Dates: start: 20120419
  2. PALIPERIDONE [Suspect]
     Indication: PSYCHOTIC DISORDER
     Route: 030
     Dates: start: 20120329
  3. DIAZEPAM [Concomitant]
     Indication: PRODUCT USED FOR UNKNOWN INDICATION
  4. CITALOPRAM HYDROBROMIDE [Suspect]
     Indication: PRODUCT USED FOR UNKNOWN INDICATION
  5. LORAZEPAM [Concomitant]
     Indication: PRODUCT USED FOR UNKNOWN INDICATION
  6. PROMETHAZINE [Concomitant]
     Indication: PRODUCT USED FOR UNKNOWN INDICATION
  7. PALIPERIDONE [Suspect]
     Route: 030

REACTIONS (2)
  - EXTRAPYRAMIDAL DISORDER [None]
  - PSYCHOTIC DISORDER [None]
